FAERS Safety Report 16584230 (Version 1)
Quarter: 2019Q3

REPORT INFORMATION
  Report Type: Spontaneous
  Country: US (occurrence: US)
  Receive Date: 20190604
  Receipt Date: 20190604
  Transmission Date: 20191004
  Serious: No
  Sender: FDA-Public Use
  Company Number: None

PATIENT
  Age: 47 Year
  Sex: Female
  Weight: 110.68 kg

DRUGS (2)
  1. CELECOXIB 200MG [Suspect]
     Active Substance: CELECOXIB
     Indication: ARTHRITIS
     Route: 048
     Dates: start: 20190429
  2. CELECOXIB 200MG [Suspect]
     Active Substance: CELECOXIB
     Indication: FIBROMYALGIA
     Route: 048
     Dates: start: 20190429

REACTIONS (3)
  - Therapeutic response changed [None]
  - Insurance issue [None]
  - Pain [None]

NARRATIVE: CASE EVENT DATE: 20190429
